FAERS Safety Report 15583534 (Version 1)
Quarter: 2018Q4

REPORT INFORMATION
  Report Type: Spontaneous
  Country: GB (occurrence: GB)
  Receive Date: 20181104
  Receipt Date: 20181104
  Transmission Date: 20190205
  Serious: Yes (Hospitalization, Other)
  Sender: FDA-Public Use
  Company Number: GB-DEXPHARM-20180810

PATIENT
  Sex: Female

DRUGS (1)
  1. CHLORHEXIDINE SOLUTION [Suspect]
     Active Substance: CHLORHEXIDINE

REACTIONS (5)
  - Injection site oedema [Unknown]
  - Accidental exposure to product [Unknown]
  - Injection site inflammation [Unknown]
  - Back pain [Recovering/Resolving]
  - Injection site pain [Recovering/Resolving]
